FAERS Safety Report 9204816 (Version 1)
Quarter: 2013Q2

REPORT INFORMATION
  Report Type: Spontaneous
  Country: US (occurrence: None)
  Receive Date: 20130401
  Receipt Date: 20130401
  Transmission Date: 20140414
  Serious: No
  Sender: FDA-Public Use
  Company Number: None

PATIENT
  Age: 71 Year
  Sex: Male
  Weight: 96.8 kg

DRUGS (1)
  1. MAGNESIUM OXIDE [Suspect]
     Dosage: MG   PO
     Route: 048

REACTIONS (1)
  - Anaphylactic reaction [None]
